FAERS Safety Report 16670030 (Version 2)
Quarter: 2019Q3

REPORT INFORMATION
  Report Type: Spontaneous
  Country: BE (occurrence: BE)
  Receive Date: 20190805
  Receipt Date: 20190828
  Transmission Date: 20191004
  Serious: Yes (Life-Threatening, Other)
  Sender: FDA-Public Use
  Company Number: BE-SEATTLE GENETICS-2019SGN02733

PATIENT
  Age: 62 Year
  Sex: Male

DRUGS (1)
  1. ADCETRIS [Suspect]
     Active Substance: BRENTUXIMAB VEDOTIN
     Indication: CUTANEOUS T-CELL LYMPHOMA
     Dosage: UNK
     Route: 065

REACTIONS (4)
  - Ileus paralytic [Unknown]
  - Hepatic failure [Recovering/Resolving]
  - Encephalopathy [Recovering/Resolving]
  - Oedematous pancreatitis [Recovering/Resolving]
